FAERS Safety Report 14372612 (Version 1)
Quarter: 2018Q1

REPORT INFORMATION
  Report Type: Spontaneous
  Country: CN (occurrence: CN)
  Receive Date: 20180110
  Receipt Date: 20180110
  Transmission Date: 20180509
  Serious: Yes (Other)
  Sender: FDA-Public Use
  Company Number: CN-PFIZER INC-2018009989

PATIENT
  Age: 31 Year
  Sex: Male
  Weight: 85 kg

DRUGS (3)
  1. LIPITOR [Suspect]
     Active Substance: ATORVASTATIN CALCIUM
     Indication: PLAQUE SHIFT
     Dosage: 20 MG, 1X/DAY AT NIGHT
     Route: 048
     Dates: start: 20171011, end: 20171015
  2. LIPITOR [Suspect]
     Active Substance: ATORVASTATIN CALCIUM
     Indication: LIPIDS ABNORMAL
  3. ASPIRIN (E.C.) [Concomitant]
     Active Substance: ASPIRIN
     Indication: PLATELET DISORDER
     Dosage: 100 MG, 1X/DAY
     Route: 048
     Dates: start: 20171015, end: 20171025

REACTIONS (2)
  - Blood creatine phosphokinase increased [Recovered/Resolved]
  - Muscle enzyme increased [Unknown]

NARRATIVE: CASE EVENT DATE: 20171015
